FAERS Safety Report 9658477 (Version 1)
Quarter: 2013Q4

REPORT INFORMATION
  Report Type: Spontaneous
  Country: US (occurrence: US)
  Receive Date: 20131030
  Receipt Date: 20131030
  Transmission Date: 20140711
  Serious: Yes (Other)
  Sender: FDA-Public Use
  Company Number: US-NAPPMUNDI-USA-2012-0084670

PATIENT
  Age: 83 Year
  Sex: Female

DRUGS (1)
  1. OXYCONTIN (NDA 22-272) [Suspect]
     Indication: WRONG DRUG ADMINISTERED
     Dosage: 80 MG, UNK

REACTIONS (3)
  - Accidental overdose [Recovered/Resolved]
  - Unresponsive to stimuli [Recovered/Resolved]
  - Wrong patient received medication [Recovered/Resolved]
